FAERS Safety Report 7628809-1 (Version None)
Quarter: 2011Q3

REPORT INFORMATION
  Report Type: 
  Country: None (occurrence: None)
  Receive Date: 20110715
  Receipt Date: 20110630
  Transmission Date: 20111222
  Serious: Yes (Life-Threatening)
  Sender: FDA-Public Use
  Company Number: TCI2011A03839

PATIENT
  Age: 67 Year
  Sex: Female

DRUGS (1)
  1. ACTOS [Suspect]
     Indication: DIABETES MELLITUS
     Dosage: 15 MG (15 MG, 1 D), PER ORAL
     Route: 048
     Dates: end: 20110601

REACTIONS (1)
  - BLADDER TRANSITIONAL CELL CARCINOMA [None]
